FAERS Safety Report 9356646 (Version 2)
Quarter: 2013Q3

REPORT INFORMATION
  Report Type: Spontaneous
  Country: US (occurrence: US)
  Receive Date: 20130619
  Receipt Date: 20130705
  Transmission Date: 20140515
  Serious: Yes (Death)
  Sender: FDA-Public Use
  Company Number: US-GILEAD-2013-0077413

PATIENT
  Age: 47 Year
  Sex: Female

DRUGS (4)
  1. LETAIRIS [Suspect]
     Indication: PULMONARY HYPERTENSION
     Dosage: 10 MG, QD
     Dates: start: 20130320, end: 20130611
  2. LETAIRIS [Suspect]
     Indication: DRUG ABUSE
  3. ADCIRCA [Suspect]
  4. REMODULIN [Suspect]

REACTIONS (2)
  - Pulmonary hypertension [Fatal]
  - Cardiogenic shock [Fatal]
